FAERS Safety Report 9157503 (Version 1)
Quarter: 2013Q1

REPORT INFORMATION
  Report Type: Report from Study
  Country: FR (occurrence: FR)
  Receive Date: 20130312
  Receipt Date: 20130312
  Transmission Date: 20140127
  Serious: Yes (Death, Hospitalization)
  Sender: FDA-Public Use
  Company Number: PHHO2013FR003639

PATIENT
  Sex: 0

DRUGS (4)
  1. NEORAL [Suspect]
     Indication: TRANSPLANT REJECTION
     Dosage: 250 MG, QD
     Route: 002
     Dates: start: 20120129, end: 201303
  2. CELLCEPT [Suspect]
     Indication: TRANSPLANT REJECTION
     Dosage: 3 G, QD
     Route: 002
     Dates: start: 20120129
  3. CELLCEPT [Suspect]
     Dosage: 1.5 G, QD
     Route: 048
     Dates: start: 20130228, end: 201303
  4. SOLUPRED [Suspect]
     Indication: TRANSPLANT REJECTION
     Dosage: 5 MG, QD
     Route: 002
     Dates: start: 20120204, end: 20120910

REACTIONS (2)
  - Death [Fatal]
  - Diarrhoea [Unknown]
